FAERS Safety Report 10225063 (Version 1)
Quarter: 2014Q2

REPORT INFORMATION
  Report Type: Spontaneous
  Country: US (occurrence: US)
  Receive Date: 20140609
  Receipt Date: 20140609
  Transmission Date: 20141212
  Serious: Yes (Life-Threatening, Other)
  Sender: FDA-Public Use
  Company Number: US-ASTRAZENECA-2014SE31954

PATIENT
  Age: 61 Year
  Sex: Male
  Weight: 85.7 kg

DRUGS (15)
  1. NEXIUM [Suspect]
     Indication: GASTROOESOPHAGEAL REFLUX DISEASE
     Route: 048
     Dates: start: 2001
  2. NEXIUM [Suspect]
     Indication: GASTROOESOPHAGEAL REFLUX DISEASE
     Dosage: EVERY OTHER DAY
     Route: 048
     Dates: start: 201404
  3. LAMICTAL [Concomitant]
     Indication: DEPRESSION
     Route: 048
     Dates: start: 2011
  4. VITAMIN B12 [Concomitant]
     Indication: DEPRESSION
     Route: 048
  5. VITAMIN D3 [Concomitant]
     Indication: VITAMIN D DECREASED
     Route: 048
  6. VITAMIN E [Concomitant]
     Dosage: UNKNOWN DAILY
     Route: 048
  7. FISH OIL [Concomitant]
     Indication: NUTRITIONAL SUPPLEMENTATION
     Route: 048
  8. ALLEGRA [Concomitant]
     Indication: MULTIPLE ALLERGIES
     Route: 048
  9. FLUOXETINE [Concomitant]
     Indication: DEPRESSION
     Route: 048
     Dates: start: 2011
  10. CIPROFLOXACINE HCL [Concomitant]
     Indication: CYSTITIS
     Route: 048
     Dates: start: 20140501
  11. CIPROFLOXACINE HCL [Concomitant]
     Indication: URINARY TRACT INFECTION
     Route: 048
     Dates: start: 20140501
  12. MIRTAZAPINE [Concomitant]
     Indication: APPETITE DISORDER
     Route: 048
     Dates: start: 2011, end: 2014
  13. MIRTAZAPINE [Concomitant]
     Indication: OBSESSIVE THOUGHTS
     Route: 048
     Dates: start: 2011, end: 2014
  14. MIRTAZAPINE [Concomitant]
     Indication: APPETITE DISORDER
     Route: 048
     Dates: start: 2011
  15. MIRTAZAPINE [Concomitant]
     Indication: OBSESSIVE THOUGHTS
     Route: 048
     Dates: start: 2011

REACTIONS (9)
  - Suicide attempt [Recovered/Resolved]
  - Hyperchlorhydria [Not Recovered/Not Resolved]
  - Gastrooesophageal reflux disease [Not Recovered/Not Resolved]
  - Gastric pH decreased [Unknown]
  - Mental disorder [Recovering/Resolving]
  - Weight decreased [Unknown]
  - Nausea [Not Recovered/Not Resolved]
  - Intentional product misuse [Unknown]
  - Drug dose omission [Unknown]
